FAERS Safety Report 7027422-7 (Version None)
Quarter: 2010Q4

REPORT INFORMATION
  Report Type: 
  Country: None (occurrence: None)
  Receive Date: 20101001
  Receipt Date: 20101001
  Transmission Date: 20110411
  Serious: No
  Sender: FDA-Public Use
  Company Number: None

PATIENT
  Sex: Female
  Weight: 68.0396 kg

DRUGS (1)
  1. DOXYCYCLINE [Suspect]
     Indication: DERMATITIS
     Dosage: 100MG ONE QD ORAL
     Route: 048
     Dates: start: 20071115, end: 20071217

REACTIONS (1)
  - DRUG INEFFECTIVE [None]
